FAERS Safety Report 7211070-X (Version None)
Quarter: 2011Q1

REPORT INFORMATION
  Report Type: 
  Country: None (occurrence: None)
  Receive Date: 20110105
  Receipt Date: 20101222
  Transmission Date: 20110831
  Serious: Yes (Death, Hospitalization, Other)
  Sender: FDA-Public Use
  Company Number: US-CELGENEUS-163-21880-08010615

PATIENT
  Sex: Female

DRUGS (5)
  1. REVLIMID [Suspect]
     Route: 048
     Dates: start: 20071127, end: 20071215
  2. REVLIMID [Suspect]
     Indication: MULTIPLE MYELOMA
     Route: 048
     Dates: start: 20080314
  3. REVLIMID [Suspect]
     Route: 048
     Dates: start: 20071230, end: 20080226
  4. DEXAMETHASONE [Concomitant]
     Route: 065
     Dates: start: 20071109
  5. PROCRIT [Concomitant]
     Indication: DIALYSIS
     Route: 065

REACTIONS (7)
  - RENAL FAILURE CHRONIC [None]
  - PANCYTOPENIA [None]
  - FALL [None]
  - DEEP VEIN THROMBOSIS [None]
  - DIZZINESS [None]
  - DEATH [None]
  - THROMBOSIS IN DEVICE [None]
